FAERS Safety Report 19012599 (Version 1)
Quarter: 2021Q1

REPORT INFORMATION
  Report Type: Report from Study
  Country: CA (occurrence: CA)
  Receive Date: 20210316
  Receipt Date: 20210316
  Transmission Date: 20210420
  Serious: Yes (Other)
  Sender: FDA-Public Use
  Company Number: CA-PFIZER INC-2021229267

PATIENT
  Sex: Male

DRUGS (9)
  1. FOLIC ACID. [Concomitant]
     Active Substance: FOLIC ACID
  2. ROSUVASTATIN. [Concomitant]
     Active Substance: ROSUVASTATIN
     Route: 058
  3. DILTIAZEM. [Concomitant]
     Active Substance: DILTIAZEM
  4. ZOPICLONE [Concomitant]
     Active Substance: ZOPICLONE
  5. PREDNISONE. [Concomitant]
     Active Substance: PREDNISONE
  6. TRANDOLAPRIL. [Concomitant]
     Active Substance: TRANDOLAPRIL
  7. RITUXIMAB. [Suspect]
     Active Substance: RITUXIMAB
     Indication: RHEUMATOID ARTHRITIS
     Dosage: 1000 MG
     Route: 042
  8. XARELTO [Concomitant]
     Active Substance: RIVAROXABAN
  9. METHOTREXATE SODIUM. [Concomitant]
     Active Substance: METHOTREXATE SODIUM
     Dosage: 20 MG
     Route: 058

REACTIONS (4)
  - Atrial fibrillation [Unknown]
  - Cardiac failure congestive [Unknown]
  - Dementia [Unknown]
  - Pulmonary embolism [Unknown]
